FAERS Safety Report 8182324 (Version 11)
Quarter: 2012Q4

REPORT INFORMATION
  Report Type: 
  Country: US (occurrence: US)
  Receive Date: 20111014
  Receipt Date: 20120904
  Transmission Date: 20130627
  Serious: Yes (Hospitalization, Other)
  Sender: FDA-Public Use
  Company Number: US-009507513-1107USA01371

PATIENT

DRUGS (9)
  1. FOSAMAX [Suspect]
     Indication: OSTEOPOROSIS
     Dosage: 70 mg, QW
     Route: 048
     Dates: start: 20040122
  2. FOSAMAX [Suspect]
     Indication: OSTEOPENIA
     Dosage: 10 mg, qd
     Route: 048
  3. FOSAMAX [Suspect]
     Dosage: 5 mg, UNK
     Route: 048
  4. FOSAMAX [Suspect]
     Indication: OSTEOPOROSIS
     Dosage: 70 mg, QW
     Route: 048
     Dates: start: 20070801, end: 20080801
  5. FOSAMAX [Suspect]
     Indication: OSTEOPENIA
  6. CALCIUM (UNSPECIFIED) [Concomitant]
  7. VITAMIN D (UNSPECIFIED) [Concomitant]
  8. VITAMIN E [Concomitant]
  9. CYANOCOBALAMIN [Concomitant]

REACTIONS (116)
  - None [Unknown]
  - Femur fracture [Unknown]
  - Fall [Unknown]
  - Hyponatraemia [Recovering/Resolving]
  - Cardiac failure congestive [Unknown]
  - None [Recovering/Resolving]
  - None [Not Recovered/Not Resolved]
  - None [Unknown]
  - Atrial fibrillation [Recovering/Resolving]
  - None [Recovering/Resolving]
  - None [Unknown]
  - None [Unknown]
  - None [Unknown]
  - Atrial fibrillation [Recovering/Resolving]
  - Pseudomonas infection [Unknown]
  - Stress [Unknown]
  - None [Unknown]
  - Iron deficiency anaemia [Unknown]
  - Leukocytosis [Not Recovered/Not Resolved]
  - Malnutrition [Unknown]
  - Bilirubin urine [Unknown]
  - Escherichia urinary tract infection [Recovered/Resolved]
  - Chronic obstructive pulmonary disease [Recovered/Resolved]
  - Anaemia [Unknown]
  - Clostridium difficile colitis [Unknown]
  - None [Recovered/Resolved]
  - Small intestinal obstruction [Unknown]
  - Femoral hernia [Unknown]
  - Hyperbilirubinaemia [Unknown]
  - Haemorrhagic anaemia [Unknown]
  - Dehydration [Unknown]
  - Gait disturbance [Unknown]
  - Hypokalaemia [Unknown]
  - Fatigue [Unknown]
  - Chest pain [Unknown]
  - Candidiasis [Unknown]
  - Phlebitis [Recovering/Resolving]
  - None [Unknown]
  - Gastrointestinal haemorrhage [Unknown]
  - Dyspnoea [Unknown]
  - Renal failure acute [Recovered/Resolved]
  - Gastrointestinal disorder [Unknown]
  - Gallbladder disorder [Unknown]
  - Cardiac infection [Recovering/Resolving]
  - Enterococcal infection [Unknown]
  - Femur fracture [Recovering/Resolving]
  - Constipation [Unknown]
  - Tooth disorder [Unknown]
  - None [Unknown]
  - None [Unknown]
  - Ankle fracture [Unknown]
  - Hypertension [Unknown]
  - Insomnia [Unknown]
  - None [Unknown]
  - Ovarian mass [Unknown]
  - Acne [Unknown]
  - Rosacea [Unknown]
  - Hyperlipidaemia [Unknown]
  - Chronic obstructive pulmonary disease [Unknown]
  - Coronary artery disease [Unknown]
  - Lower gastrointestinal haemorrhage [Unknown]
  - Diverticulitis intestinal haemorrhagic [Unknown]
  - Left ventricular hypertrophy [Unknown]
  - Osteoarthritis [Unknown]
  - Diabetes mellitus [Unknown]
  - Weight decreased [Unknown]
  - Bowel movement irregularity [Unknown]
  - Hypertensive heart disease [Unknown]
  - None [Unknown]
  - None [Unknown]
  - Pulmonary fibrosis [Not Recovered/Not Resolved]
  - Atelectasis [Unknown]
  - Pulmonary hypertension [Unknown]
  - Mitral valve incompetence [Unknown]
  - Left atrial dilatation [Unknown]
  - Chest discomfort [Unknown]
  - Haemorrhoids [Unknown]
  - Rib fracture [Recovered/Resolved]
  - Large intestine polyp [Unknown]
  - Osteoarthritis [Unknown]
  - None [Unknown]
  - Sacroiliitis [Unknown]
  - Osteopenia [Unknown]
  - None [Unknown]
  - Diverticulitis [Not Recovered/Not Resolved]
  - Scapula fracture [Recovered/Resolved]
  - Clavicle fracture [Recovered/Resolved]
  - Pneumothorax [Recovered/Resolved]
  - Cardiac disorder [Unknown]
  - Cerebral atrophy [Unknown]
  - Pulmonary granuloma [Unknown]
  - Arthropathy [Unknown]
  - Enterocolitis infectious [Recovering/Resolving]
  - Diverticulitis [Unknown]
  - Urinary tract infection [Unknown]
  - Splenic granuloma [Unknown]
  - Lymph node calcification [Unknown]
  - Weight increased [Unknown]
  - Hypoxia [Unknown]
  - Restrictive pulmonary disease [Unknown]
  - Hypotension [Unknown]
  - None [Unknown]
  - None [Unknown]
  - Tendon rupture [Unknown]
  - Arthropathy [Unknown]
  - Rotator cuff syndrome [Unknown]
  - None [Unknown]
  - Rotator cuff syndrome [Unknown]
  - Rotator cuff syndrome [Unknown]
  - Spinal osteoarthritis [Unknown]
  - Asthma [Unknown]
  - Asthenia [Unknown]
  - Drug ineffective [Unknown]
  - Oedema peripheral [Unknown]
  - Abdominal pain [Unknown]
  - Oedema peripheral [Unknown]
